FAERS Safety Report 11367452 (Version 1)
Quarter: 2015Q3

REPORT INFORMATION
  Report Type: Spontaneous
  Country: US (occurrence: US)
  Receive Date: 20150811
  Receipt Date: 20150811
  Transmission Date: 20151125
  Serious: No
  Sender: FDA-Public Use
  Company Number: US-ELI_LILLY_AND_COMPANY-US201204001280

PATIENT
  Sex: Male

DRUGS (3)
  1. AXIRON [Suspect]
     Active Substance: TESTOSTERONE
     Dosage: 120 MG, UNK
     Dates: start: 201111
  2. METHADONE [Concomitant]
     Active Substance: METHADONE HYDROCHLORIDE
  3. HEROIN [Concomitant]
     Active Substance: DIACETYLMORPHINE

REACTIONS (1)
  - Blood testosterone decreased [Unknown]
